FAERS Safety Report 19683163 (Version 2)
Quarter: 2021Q3

REPORT INFORMATION
  Report Type: Spontaneous
  Country: US (occurrence: US)
  Receive Date: 20210810
  Receipt Date: 20210810
  Transmission Date: 20211014
  Serious: No
  Sender: FDA-Public Use
  Company Number: US-HORIZON THERAPEUTICS-HZN-2021-003188

PATIENT
  Age: 59 Year
  Sex: Female

DRUGS (1)
  1. TEPEZZA [Suspect]
     Active Substance: TEPROTUMUMAB-TRBW
     Indication: PRODUCT USED FOR UNKNOWN INDICATION
     Dosage: UNK
     Route: 065
     Dates: start: 20210505

REACTIONS (7)
  - Heart rate decreased [Unknown]
  - Tremor [Unknown]
  - Muscle spasms [Unknown]
  - Weight decreased [Unknown]
  - Palpitations [Unknown]
  - Nausea [Unknown]
  - Dry skin [Unknown]

NARRATIVE: CASE EVENT DATE: 20210511
